FAERS Safety Report 9917431 (Version 2)
Quarter: 2014Q1

REPORT INFORMATION
  Report Type: Spontaneous
  Country: US (occurrence: US)
  Receive Date: 20140221
  Receipt Date: 20140306
  Transmission Date: 20141002
  Serious: No
  Sender: FDA-Public Use
  Company Number: US-PFIZER INC-2014048264

PATIENT
  Sex: Female

DRUGS (1)
  1. GENOTROPIN [Suspect]
     Dosage: UNK
     Dates: start: 200102

REACTIONS (3)
  - Incorrect dose administered [Unknown]
  - Blood glucose abnormal [Unknown]
  - Product quality issue [Unknown]
